FAERS Safety Report 13131086 (Version 2)
Quarter: 2017Q1

REPORT INFORMATION
  Report Type: Spontaneous
  Country: IT (occurrence: IT)
  Receive Date: 20170119
  Receipt Date: 20170119
  Transmission Date: 20170428
  Serious: Yes (Other)
  Sender: FDA-Public Use
  Company Number: IT-BRISTOL-MYERS SQUIBB COMPANY-BMS-2017-002322

PATIENT

DRUGS (1)
  1. OPDIVO [Suspect]
     Active Substance: NIVOLUMAB
     Indication: LYMPHOMA
     Route: 065

REACTIONS (9)
  - Pneumonia [Unknown]
  - Pyrexia [Unknown]
  - Diarrhoea [Unknown]
  - Pulmonary oedema [Unknown]
  - Pneumonitis [Unknown]
  - Rash [Unknown]
  - Fatigue [Unknown]
  - Respiratory disorder [Unknown]
  - Product use issue [Unknown]
